FAERS Safety Report 10953459 (Version 1)
Quarter: 2015Q1

REPORT INFORMATION
  Report Type: Spontaneous
  Country: SE (occurrence: None)
  Receive Date: 20150323
  Receipt Date: 20150323
  Transmission Date: 20150721
  Serious: Yes (Death)
  Sender: FDA-Public Use
  Company Number: 2015SE0156

PATIENT
  Sex: Male

DRUGS (1)
  1. KINERET [Suspect]
     Active Substance: ANAKINRA
     Indication: MENINGITIS
     Dates: start: 20150313, end: 20150314

REACTIONS (3)
  - Brain herniation [None]
  - General physical health deterioration [None]
  - Death [None]

NARRATIVE: CASE EVENT DATE: 20150314
